FAERS Safety Report 10042141 (Version 2)
Quarter: 2014Q1

REPORT INFORMATION
  Report Type: Spontaneous
  Country: JP (occurrence: JP)
  Receive Date: 20140327
  Receipt Date: 20140327
  Transmission Date: 20141002
  Serious: Yes (Other)
  Sender: FDA-Public Use
  Company Number: JP-PFIZER INC-2014069156

PATIENT
  Age: 71 Year
  Sex: Male

DRUGS (6)
  1. LYRICA [Suspect]
     Dosage: 25 MG, 2X/DAY
     Route: 048
     Dates: start: 20140121, end: 2014
  2. NEUROTROPIN [Concomitant]
  3. SOLON [Concomitant]
  4. VOLTAREN [Concomitant]
  5. MECOBALAMIN [Concomitant]
  6. UFT [Concomitant]
     Indication: BLADDER CANCER
     Dosage: UNK
     Route: 048
     Dates: end: 2014

REACTIONS (2)
  - Gastric ulcer [Unknown]
  - Alopecia [Not Recovered/Not Resolved]
